FAERS Safety Report 5873509-1 (Version None)
Quarter: 2008Q3

REPORT INFORMATION
  Report Type: 
  Country: None (occurrence: None)
  Receive Date: 20080903
  Receipt Date: 20080822
  Transmission Date: 20090109
  Serious: Yes (Life-Threatening, Hospitalization)
  Sender: FDA-Public Use
  Company Number: 2008-02026

PATIENT
  Age: 66 Year
  Sex: Female
  Weight: 65 kg

DRUGS (2)
  1. VELCADE [Suspect]
     Indication: DRUG USE FOR UNKNOWN INDICATION
     Dosage: 2.2 MG, INTRAVENOUS
     Route: 042
     Dates: start: 20080111, end: 20080313
  2. RIBOMUSTIN(BENDAMUSTINE HYDROCHLORIDE) [Suspect]
     Indication: DRUG USE FOR UNKNOWN INDICATION
     Dosage: 170 MG, INTRAVENOUS
     Route: 042
     Dates: start: 20080310, end: 20080311

REACTIONS (11)
  - ABDOMINAL PAIN [None]
  - ALPHA HAEMOLYTIC STREPTOCOCCAL INFECTION [None]
  - CHEST PAIN [None]
  - COLITIS COLLAGENOUS [None]
  - DYSPEPSIA [None]
  - GASTROINTESTINAL PAIN [None]
  - HYPONATRAEMIA [None]
  - MUCOSAL INFLAMMATION [None]
  - POLYNEUROPATHY [None]
  - SEPSIS [None]
  - VOMITING [None]
